FAERS Safety Report 5934622-3 (Version None)
Quarter: 2008Q4

REPORT INFORMATION
  Report Type: 
  Country: None (occurrence: None)
  Receive Date: 20081029
  Receipt Date: 20081022
  Transmission Date: 20090506
  Serious: Yes (Hospitalization, Other)
  Sender: FDA-Public Use
  Company Number: BR-ABBOTT-08P-020-0483670-00

PATIENT
  Sex: Female
  Weight: 60 kg

DRUGS (3)
  1. HUMIRA [Suspect]
     Indication: PSORIATIC ARTHROPATHY
     Route: 058
     Dates: start: 20080401
  2. PREDNISONE TAB [Concomitant]
     Indication: DRUG USE FOR UNKNOWN INDICATION
  3. OS-CAL [Concomitant]
     Indication: DRUG USE FOR UNKNOWN INDICATION

REACTIONS (9)
  - BLOOD CHOLESTEROL INCREASED [None]
  - COUGH [None]
  - EPISTAXIS [None]
  - HEADACHE [None]
  - HYPERGLYCAEMIA [None]
  - INFLUENZA [None]
  - PULMONARY TUBERCULOSIS [None]
  - SINUSITIS [None]
  - WEIGHT DECREASED [None]
